FAERS Safety Report 8099571-6 (Version None)
Quarter: 2012Q1

REPORT INFORMATION
  Report Type: 
  Country: None (occurrence: None)
  Receive Date: 20120129
  Receipt Date: 20111011
  Transmission Date: 20120608
  Serious: No
  Sender: FDA-Public Use
  Company Number: US-ABBOTT-11P-163-0862001-00

PATIENT
  Sex: Female
  Weight: 88.984 kg

DRUGS (6)
  1. VICTOZA [Concomitant]
     Indication: DIABETES MELLITUS
  2. UNNAMED MEDICATION [Concomitant]
     Indication: HYPERTENSION
  3. HUMIRA [Suspect]
     Indication: PSORIASIS
  4. HUMIRA [Suspect]
     Indication: PSORIATIC ARTHROPATHY
  5. HUMIRA [Suspect]
     Indication: PSORIATIC ARTHROPATHY
     Dates: end: 20100101
  6. HUMIRA [Suspect]
     Indication: PSORIASIS
     Dates: start: 20100101, end: 20110901

REACTIONS (3)
  - VAGINAL ULCERATION [None]
  - SKIN LESION [None]
  - ILL-DEFINED DISORDER [None]
